FAERS Safety Report 13469352 (Version 1)
Quarter: 2017Q2

REPORT INFORMATION
  Report Type: Spontaneous
  Country: US (occurrence: US)
  Receive Date: 20170421
  Receipt Date: 20170421
  Transmission Date: 20170830
  Serious: Yes (Other)
  Sender: FDA-Public Use
  Company Number: US-BAUSCH-BL-2017-010572

PATIENT
  Age: 90 Year
  Sex: Female

DRUGS (1)
  1. LATANOPROST OPHTHALMIC SOLUTION 0.005% [Suspect]
     Active Substance: LATANOPROST
     Indication: GLAUCOMA
     Dosage: 1 DROP IN BOTH EYES
     Route: 047

REACTIONS (4)
  - Eye haemorrhage [Unknown]
  - Blindness [Unknown]
  - Intraocular pressure fluctuation [Recovered/Resolved]
  - Dry eye [Unknown]
